FAERS Safety Report 25817799 (Version 4)
Quarter: 2025Q4

REPORT INFORMATION
  Report Type: Spontaneous
  Country: CA (occurrence: CA)
  Receive Date: 20250918
  Receipt Date: 20251103
  Transmission Date: 20260117
  Serious: Yes (Hospitalization, Other)
  Sender: PFIZER
  Company Number: CA-PFIZER INC-202500129335

PATIENT
  Age: 53 Year
  Sex: Female

DRUGS (2)
  1. ABRILADA [Suspect]
     Active Substance: ADALIMUMAB-AFZB
     Indication: Pouchitis
     Dosage: 40 MG,(1 DF) 160 MG WEEK 0, 80 MG WEEK 2, THEN 40MG EVERY 2 WEEKS STARTING WEEK 4
     Route: 058
     Dates: start: 20250509
  2. ABRILADA [Suspect]
     Active Substance: ADALIMUMAB-AFZB
     Dosage: 40 MG, 160 MG WEEK 0, 80 MG WEEK 2, THEN 40MG EVERY 2 WEEKS STARTING WEEK 4
     Route: 058
     Dates: start: 2025

REACTIONS (5)
  - Staphylococcal bacteraemia [Unknown]
  - Intestinal anastomosis [Unknown]
  - Gastrointestinal disorder [Unknown]
  - Post procedural complication [Unknown]
  - Off label use [Unknown]

NARRATIVE: CASE EVENT DATE: 20250901
